FAERS Safety Report 8224722-X (Version None)
Quarter: 2012Q1

REPORT INFORMATION
  Report Type: 
  Country: None (occurrence: None)
  Receive Date: 20120321
  Receipt Date: 20120316
  Transmission Date: 20120608
  Serious: Yes (Other)
  Sender: FDA-Public Use
  Company Number: PHHY2012CA023989

PATIENT
  Sex: Male

DRUGS (11)
  1. HYDROCHLOROQUINE [Concomitant]
     Dosage: 200 MG, BID
  2. PROGRAF [Concomitant]
     Dosage: 2 DF, DAILY
  3. ROCALTROL [Concomitant]
     Dosage: 1 DF, TID
  4. FUROSEMIDE [Concomitant]
     Dosage: 2 DF, DAILY
  5. WARFARIN SODIUM [Concomitant]
     Dosage: 1 DF, BID
     Route: 048
  6. RAMIPRIL [Concomitant]
     Dosage: 1 DF, DAILY
  7. RASILEZ [Suspect]
     Dosage: 1 DF, DAILY
  8. PREDNISOLONE [Concomitant]
     Dosage: 5 MG, PRN
  9. NORVASC [Concomitant]
     Dosage: 2 DF, DAILY
  10. ATENOLOL [Concomitant]
     Dosage: 1 DF, DAILY
  11. DILANTIN [Concomitant]
     Dosage: 3 DF, DAILY

REACTIONS (1)
  - CONVULSION [None]
